FAERS Safety Report 7309077-7 (Version None)
Quarter: 2011Q1

REPORT INFORMATION
  Report Type: 
  Country: None (occurrence: None)
  Receive Date: 20110223
  Receipt Date: 20110209
  Transmission Date: 20110831
  Serious: Yes (Death)
  Sender: FDA-Public Use
  Company Number: US-TYCO HEALTHCARE/MALLINCKRODT-T201100207

PATIENT
  Age: 29 Year
  Sex: Male

DRUGS (7)
  1. PRIMIDONE [Suspect]
  2. LEVETIRACETAM [Suspect]
  3. FENTANYL-100 [Suspect]
  4. CLONAZEPAM [Suspect]
  5. VENLAFAXINE [Suspect]
  6. ACETAMINOPHEN AND HYDROCODONE BITARTRATE [Suspect]
     Route: 048
  7. TIZANIDINE [Suspect]

REACTIONS (2)
  - CARDIO-RESPIRATORY ARREST [None]
  - COMPLETED SUICIDE [None]
